FAERS Safety Report 8433475-1 (Version None)
Quarter: 2012Q2

REPORT INFORMATION
  Report Type: 
  Country: None (occurrence: None)
  Receive Date: 20120323
  Receipt Date: 20111003
  Transmission Date: 20120825
  Serious: Yes (Other)
  Sender: FDA-Public Use
  Company Number: 163-21880-11061248

PATIENT
  Age: 66 Year
  Sex: Female
  Weight: 93.441 kg

DRUGS (11)
  1. DIOVAN [Concomitant]
  2. ASPIRIN [Concomitant]
  3. DEXAMETHASONE [Concomitant]
  4. OXYCODONE HCL [Concomitant]
  5. OMNIPRED (PREDNISOLONE ACETATE) [Concomitant]
  6. TYLENOL PM (TYLENOL PM) [Concomitant]
  7. REVLIMID [Suspect]
     Indication: MULTIPLE MYELOMA
     Dosage: 10 MG, QD X 21 DAYS, PO
     Route: 048
     Dates: start: 20110517, end: 20110906
  8. ATENOLOL [Concomitant]
  9. PEPCID AC [Concomitant]
  10. LORAZEPAM [Concomitant]
  11. LYRICA (PREGALBALIN) [Concomitant]

REACTIONS (1)
  - HAEMOGLOBIN DECREASED [None]
